FAERS Safety Report 16961587 (Version 2)
Quarter: 2019Q4

REPORT INFORMATION
  Report Type: Spontaneous
  Country: CO (occurrence: CO)
  Receive Date: 20191025
  Receipt Date: 20191231
  Transmission Date: 20200122
  Serious: Yes (Other)
  Sender: FDA-Public Use
  Company Number: CO-PFIZER INC-2019458238

PATIENT
  Age: 52 Year
  Sex: Female

DRUGS (3)
  1. REAMPLA [Suspect]
     Active Substance: PALBOCICLIB
     Indication: BREAST CANCER METASTATIC
     Dosage: 125 MG, CYCLIC (3 WEEKS AND REST 1 WEEK)
     Route: 048
     Dates: start: 201903, end: 201906
  2. LETROZOLE. [Concomitant]
     Active Substance: LETROZOLE
     Dosage: UNK
  3. REAMPLA [Suspect]
     Active Substance: PALBOCICLIB
     Dosage: 100 MG, CYCLIC (3 WEEKS AND REST 1 WEEK)
     Route: 048
     Dates: start: 201906, end: 2019

REACTIONS (8)
  - White blood cell count decreased [Unknown]
  - Liver injury [Unknown]
  - Nail disorder [Unknown]
  - Neoplasm progression [Unknown]
  - Helicobacter test positive [Unknown]
  - Vocal cord scarring [Unknown]
  - Neutrophil count decreased [Not Recovered/Not Resolved]
  - Onychoclasis [Unknown]

NARRATIVE: CASE EVENT DATE: 2019
